FAERS Safety Report 8395734-0 (Version None)
Quarter: 2012Q2

REPORT INFORMATION
  Report Type: 
  Country: None (occurrence: None)
  Receive Date: 20120530
  Receipt Date: 20120521
  Transmission Date: 20120825
  Serious: Yes (Other)
  Sender: FDA-Public Use
  Company Number: US-ASTRAZENECA-2011SE58430

PATIENT
  Age: 56 Year
  Sex: Female

DRUGS (1)
  1. SEROQUEL [Suspect]
     Indication: BIPOLAR I DISORDER
     Route: 048

REACTIONS (8)
  - ADVERSE EVENT [None]
  - DEPRESSION [None]
  - DRUG DOSE OMISSION [None]
  - THYROID DISORDER [None]
  - INTENTIONAL DRUG MISUSE [None]
  - NEOPLASM MALIGNANT [None]
  - FEELING ABNORMAL [None]
  - INSOMNIA [None]
